FAERS Safety Report 6679802-7 (Version None)
Quarter: 2010Q2

REPORT INFORMATION
  Report Type: 
  Country: None (occurrence: None)
  Receive Date: 20100413
  Receipt Date: 20091117
  Transmission Date: 20101027
  Serious: No
  Sender: FDA-Public Use
  Company Number: US-ASTRAZENECA-2009SE27107

PATIENT
  Age: 68 Year
  Sex: Male

DRUGS (4)
  1. ATENOLOL [Suspect]
     Route: 048
  2. ALFUZOSIN HYDROCHLORIDE [Suspect]
     Indication: BENIGN PROSTATIC HYPERPLASIA
     Route: 048
     Dates: start: 20090603
  3. VIAGRA [Suspect]
  4. CARDIZEM [Concomitant]

REACTIONS (5)
  - DISTURBANCE IN SEXUAL AROUSAL [None]
  - DIZZINESS [None]
  - DRUG INEFFECTIVE [None]
  - SEMEN VOLUME DECREASED [None]
  - SEXUAL DYSFUNCTION [None]
